FAERS Safety Report 5397921-2 (Version None)
Quarter: 2007Q3

REPORT INFORMATION
  Report Type: 
  Country: None (occurrence: None)
  Receive Date: 20070726
  Receipt Date: 20070716
  Transmission Date: 20080115
  Serious: Yes (Hospitalization)
  Sender: FDA-Public Use
  Company Number: ES-ELI_LILLY_AND_COMPANY-ES200707004225

PATIENT
  Age: 87 Year
  Sex: Female

DRUGS (3)
  1. FORTEO [Suspect]
     Indication: OSTEOPOROSIS
     Dosage: 20 UG, UNKNOWN
     Route: 058
     Dates: start: 20060201
  2. ANXIOLYTICS [Concomitant]
     Dosage: UNK, UNKNOWN
     Route: 065
  3. ANTI-ASTHMATICS [Concomitant]
     Indication: ASTHMA
     Dosage: UNK, UNKNOWN
     Route: 065

REACTIONS (5)
  - ANEURYSM [None]
  - ANXIETY [None]
  - CEREBRAL INFARCTION [None]
  - DIZZINESS [None]
  - NERVOUS SYSTEM DISORDER [None]
